FAERS Safety Report 7582894-4 (Version None)
Quarter: 2011Q2

REPORT INFORMATION
  Report Type: 
  Country: None (occurrence: None)
  Receive Date: 20110630
  Receipt Date: 20110623
  Transmission Date: 20111010
  Serious: Yes (Death, Hospitalization)
  Sender: FDA-Public Use
  Company Number: CA-ELI_LILLY_AND_COMPANY-CA201105008706

PATIENT
  Sex: Female
  Weight: 73 kg

DRUGS (1)
  1. ADCIRCA [Suspect]
     Indication: PULMONARY ARTERIAL HYPERTENSION
     Dosage: 40 MG, QD
     Route: 048
     Dates: start: 20100413

REACTIONS (3)
  - UROSEPSIS [None]
  - SEPTIC SHOCK [None]
  - MULTI-ORGAN FAILURE [None]
